FAERS Safety Report 4368329-3 (Version None)
Quarter: 2004Q2

REPORT INFORMATION
  Report Type: 
  Country: None (occurrence: None)
  Receive Date: 20040602
  Receipt Date: 20040524
  Transmission Date: 20050107
  Serious: Yes (Other)
  Sender: FDA-Public Use
  Company Number: PHNU2004DE01925

PATIENT
  Age: 62 Year
  Sex: Female

DRUGS (5)
  1. VOLTAREN [Suspect]
     Indication: OSTEOARTHRITIS
     Route: 048
     Dates: start: 20040401, end: 20040516
  2. VOLTAREN [Suspect]
     Route: 048
     Dates: start: 20040201, end: 20040201
  3. VOLTAREN [Suspect]
     Indication: OSTEOARTHRITIS
  4. TENORMIN [Concomitant]
  5. DELIX [Concomitant]

REACTIONS (3)
  - PHOTOPSIA [None]
  - VASOSPASM [None]
  - VISION BLURRED [None]
